FAERS Safety Report 25967809 (Version 2)
Quarter: 2025Q4

REPORT INFORMATION
  Report Type: Report from Study
  Country: EU (occurrence: EU)
  Receive Date: 20251028
  Receipt Date: 20251203
  Transmission Date: 20260117
  Serious: Yes (Hospitalization)
  Sender: ABBVIE
  Company Number: EU-ABBVIE-6518765

PATIENT
  Age: 89 Year
  Sex: Male

DRUGS (4)
  1. FOSCARBIDOPA\FOSLEVODOPA [Suspect]
     Active Substance: FOSCARBIDOPA\FOSLEVODOPA
     Indication: Parkinson^s disease
     Dosage: LD: 1.2 ML, CR: LOW: 0.30 ML/H, BASE: 0.55 ML/H, HIGH: 0.60 ML/H, ED: 0.30 ML. LAST ADMIN 2025
     Route: 058
     Dates: start: 20250822
  2. AVODART [Concomitant]
     Active Substance: DUTASTERIDE
     Indication: Product used for unknown indication
     Dosage: 0.5
  3. ALFUZOSIN [Concomitant]
     Active Substance: ALFUZOSIN
     Indication: Product used for unknown indication
     Dosage: 0.5
  4. COVID-19 vaccine [Concomitant]
     Indication: Product used for unknown indication

REACTIONS (3)
  - Pulmonary oedema [Recovered/Resolved]
  - Oedema peripheral [Unknown]
  - Dyspnoea [Unknown]

NARRATIVE: CASE EVENT DATE: 20250101
